FAERS Safety Report 4531316-6 (Version None)
Quarter: 2004Q4

REPORT INFORMATION
  Report Type: 
  Country: None (occurrence: None)
  Receive Date: 20041206
  Receipt Date: 20041007
  Transmission Date: 20050328
  Serious: No
  Sender: FDA-Public Use
  Company Number: USA041080488

PATIENT
  Age: 53 Year
  Sex: Female

DRUGS (4)
  1. CYMBALTA [Suspect]
     Indication: DEPRESSION
     Dosage: 30 MG DAY
     Dates: start: 20041001
  2. PROZAC [Suspect]
     Indication: DEPRESSION
     Dosage: 20 MG DAY
  3. XANAX - SLOW RELEASE (ALPRAZOLAM DUM) [Concomitant]
  4. ACETAMINOPHEN W/HYDROCODONE) [Concomitant]

REACTIONS (6)
  - DISTURBANCE IN ATTENTION [None]
  - FATIGUE [None]
  - FEELING ABNORMAL [None]
  - INSOMNIA [None]
  - MENTAL DISORDER [None]
  - NAUSEA [None]
